FAERS Safety Report 6858580-2 (Version None)
Quarter: 2010Q3

REPORT INFORMATION
  Report Type: 
  Country: None (occurrence: None)
  Receive Date: 20100719
  Receipt Date: 20100705
  Transmission Date: 20110219
  Serious: Yes (Hospitalization, Other)
  Sender: FDA-Public Use
  Company Number: US-GENENTECH-304085

PATIENT
  Age: 55 Year
  Sex: Male

DRUGS (11)
  1. RITUXAN [Suspect]
     Indication: CHRONIC LYMPHOCYTIC LEUKAEMIA
     Dosage: 375 MG/M2, 1/WEEK
     Route: 065
     Dates: start: 20031001
  2. RITUXAN [Suspect]
     Dosage: 375 MG/M2, Q4W
     Route: 065
     Dates: start: 20050601
  3. RITUXAN [Suspect]
     Dosage: UNK
     Route: 065
  4. RITUXAN [Suspect]
     Dosage: UNK
     Route: 065
     Dates: start: 20070801
  5. RITUXAN [Suspect]
     Dosage: UNK
     Route: 065
     Dates: start: 20080301
  6. DEXAMETHASONE [Concomitant]
     Indication: CHRONIC LYMPHOCYTIC LEUKAEMIA
     Dosage: 200 MG/M2, QAM
     Dates: start: 20031001
  7. METHYLPREDNISOLONE [Concomitant]
     Indication: CHRONIC LYMPHOCYTIC LEUKAEMIA
     Dosage: 1000 MG/M2, QAM
     Dates: start: 20050601
  8. METHYLPREDNISOLONE [Concomitant]
     Dosage: UNK
  9. METHYLPREDNISOLONE [Concomitant]
     Dosage: UNK
     Dates: start: 20070801
  10. METHYLPREDNISOLONE [Concomitant]
     Dosage: UNK
     Dates: start: 20080301
  11. CPG 7909 [Concomitant]
     Indication: PRODUCT USED FOR UNKNOWN INDICATION
     Dosage: UNK
     Route: 058
     Dates: start: 20050101

REACTIONS (2)
  - ORGANISING PNEUMONIA [None]
  - PANCYTOPENIA [None]
